FAERS Safety Report 10227195 (Version 1)
Quarter: 2014Q2

REPORT INFORMATION
  Report Type: Spontaneous
  Country: FR (occurrence: None)
  Receive Date: 20140606
  Receipt Date: 20140606
  Transmission Date: 20141212
  Serious: Yes (Death)
  Sender: FDA-Public Use
  Company Number: 2014FR00509

PATIENT
  Sex: 0

DRUGS (2)
  1. GEMCITABINE (GEMCITABINE) INJECTION [Suspect]
     Indication: BILE DUCT CANCER
     Dosage: 1000 MG/M2 AS FIXED DOSE RATE, 100 MIN INTRAVENOUS INFUSION (10 MG/M2 PER MIN) ON, INFUSION
  2. OXALIPATIN [Suspect]
     Indication: BILE DUCT CANCER
     Dosage: 100 MG/M2 AS A 2 H INFUSION ON DAY 2.4, INFUSION

REACTIONS (1)
  - Atypical pneumonia [None]
